FAERS Safety Report 18141479 (Version 2)
Quarter: 2020Q4

REPORT INFORMATION
  Report Type: Spontaneous
  Country: US (occurrence: US)
  Receive Date: 20200812
  Receipt Date: 20201012
  Transmission Date: 20210113
  Serious: Yes (Other)
  Sender: FDA-Public Use
  Company Number: US-BRISTOL-MYERS SQUIBB COMPANY-BMS-2020-062115

PATIENT
  Sex: Male

DRUGS (3)
  1. BOSULIF [Suspect]
     Active Substance: BOSUTINIB MONOHYDRATE
     Indication: CHRONIC MYELOID LEUKAEMIA
     Dosage: 400 MILLIGRAM
     Dates: start: 2016
  2. BOSULIF [Suspect]
     Active Substance: BOSUTINIB MONOHYDRATE
     Dosage: 200 MILLIGRAM
     Dates: start: 2019
  3. SPRYCEL [Suspect]
     Active Substance: DASATINIB
     Indication: CHRONIC MYELOID LEUKAEMIA
     Dosage: 400 MILLIGRAM DAILY
     Route: 048
     Dates: start: 2015, end: 2016

REACTIONS (9)
  - Aortic disorder [Unknown]
  - Blindness [Not Recovered/Not Resolved]
  - Pain in extremity [Not Recovered/Not Resolved]
  - Prescribed overdose [Unknown]
  - Illness [Unknown]
  - Pulmonary oedema [Unknown]
  - Cardiac valve disease [Unknown]
  - Depression [Not Recovered/Not Resolved]
  - Rash [Recovering/Resolving]
